FAERS Safety Report 23207748 (Version 1)
Quarter: 2023Q4

REPORT INFORMATION
  Report Type: Spontaneous
  Country: CN (occurrence: CN)
  Receive Date: 20231121
  Receipt Date: 20231121
  Transmission Date: 20240109
  Serious: Yes (Other)
  Sender: FDA-Public Use
  Company Number: CN-STRIDES ARCOLAB LIMITED-2023SP017260

PATIENT
  Age: 60 Year
  Sex: Female

DRUGS (19)
  1. ETOPOSIDE [Suspect]
     Active Substance: ETOPOSIDE
     Indication: Clear cell endometrial carcinoma
     Dosage: UNK, CYCLICAL (LOW-DOSE AS THE INDUCTION CHEMOTHERAPY)
     Route: 065
  2. ETOPOSIDE [Suspect]
     Active Substance: ETOPOSIDE
     Indication: Choriocarcinoma
     Dosage: UNK, CYCLICAL (WITH PACLITAXEL IN ANOTHER REGIMEN)
     Route: 065
  3. ETOPOSIDE [Suspect]
     Active Substance: ETOPOSIDE
     Dosage: UNK, CYCLICAL (WITH METHOTREXATE AND DACTINOMYCIN IN ANOTHER REGIMEN)
     Route: 065
  4. ETOPOSIDE [Suspect]
     Active Substance: ETOPOSIDE
     Dosage: UNK (AFTER THORACOSCOPIC RESECTION, WITH DACTINOMYCIN IN ANOTHER REGIMEN)
     Route: 065
  5. CISPLATIN [Suspect]
     Active Substance: CISPLATIN
     Indication: Clear cell endometrial carcinoma
     Dosage: UNK, CYCLICAL (AS INDUCTION CHEMOTHERAPY)
     Route: 065
  6. CISPLATIN [Suspect]
     Active Substance: CISPLATIN
     Indication: Choriocarcinoma
     Dosage: UNK (WITH PACLITAXEL IN ANOTHER REGIMEN)
     Route: 065
  7. CARBOPLATIN [Suspect]
     Active Substance: CARBOPLATIN
     Indication: Clear cell endometrial carcinoma
     Dosage: UNK, CYCLICAL (AUC=4)
     Route: 065
  8. CARBOPLATIN [Suspect]
     Active Substance: CARBOPLATIN
     Indication: Choriocarcinoma
     Dosage: UNK, CYCLICAL (AUC=5)
     Route: 065
  9. METHOTREXATE [Suspect]
     Active Substance: METHOTREXATE
     Indication: Clear cell endometrial carcinoma
     Dosage: UNK, CYCLICAL (WITH ETOPOSIDE AND DACTINOMYCIN)
     Route: 065
  10. METHOTREXATE [Suspect]
     Active Substance: METHOTREXATE
     Indication: Choriocarcinoma
  11. CYCLOPHOSPHAMIDE [Suspect]
     Active Substance: CYCLOPHOSPHAMIDE
     Indication: Clear cell endometrial carcinoma
     Dosage: UNK, CYCLICAL
     Route: 065
  12. CYCLOPHOSPHAMIDE [Suspect]
     Active Substance: CYCLOPHOSPHAMIDE
     Indication: Choriocarcinoma
  13. DACTINOMYCIN [Suspect]
     Active Substance: DACTINOMYCIN
     Indication: Clear cell endometrial carcinoma
     Dosage: UNK, CYCLICAL (WITH ETOPOSIDE AND METHOTREXATE)
     Route: 065
  14. DACTINOMYCIN [Suspect]
     Active Substance: DACTINOMYCIN
     Indication: Choriocarcinoma
     Dosage: UNK (AFTER THORACOSCOPIC RESECTION WITH ETOPOSIDE)
     Route: 065
  15. PACLITAXEL [Suspect]
     Active Substance: PACLITAXEL
     Indication: Clear cell endometrial carcinoma
     Dosage: UNK, CYCLICAL (WITH CISPLATIN)
     Route: 065
  16. PACLITAXEL [Suspect]
     Active Substance: PACLITAXEL
     Indication: Choriocarcinoma
     Dosage: UNK, CYCLICAL (WITH ETOPOSIDE)
     Route: 065
  17. PACLITAXEL [Suspect]
     Active Substance: PACLITAXEL
     Dosage: UNK (3 WEEKLY WITH CARBOPLATIN)
     Route: 065
  18. VINCRISTINE [Suspect]
     Active Substance: VINCRISTINE
     Indication: Clear cell endometrial carcinoma
     Dosage: UNK, CYCLICAL
     Route: 065
  19. VINCRISTINE [Suspect]
     Active Substance: VINCRISTINE
     Indication: Choriocarcinoma

REACTIONS (4)
  - Nephropathy toxic [Unknown]
  - Myelosuppression [Unknown]
  - Therapy partial responder [Unknown]
  - Off label use [Unknown]
